FAERS Safety Report 16268910 (Version 1)
Quarter: 2019Q2

REPORT INFORMATION
  Report Type: Spontaneous
  Country: CN (occurrence: CN)
  Receive Date: 20190503
  Receipt Date: 20190503
  Transmission Date: 20190711
  Serious: Yes (Other)
  Sender: FDA-Public Use
  Company Number: CN-ACCORD-125562

PATIENT
  Age: 63 Year
  Sex: Male

DRUGS (3)
  1. ENDOSTATIN [Concomitant]
     Active Substance: ENDOSTATIN
     Indication: LUNG ADENOCARCINOMA
     Dates: start: 201601, end: 201603
  2. CISPLATIN. [Suspect]
     Active Substance: CISPLATIN
     Indication: LUNG ADENOCARCINOMA
     Dates: start: 201601, end: 201603
  3. PEMETREXED. [Suspect]
     Active Substance: PEMETREXED
     Indication: LUNG ADENOCARCINOMA
     Dates: start: 201601, end: 201609

REACTIONS (2)
  - Gastrointestinal toxicity [Unknown]
  - Haematotoxicity [Unknown]
